FAERS Safety Report 11681383 (Version 2)
Quarter: 2015Q4

REPORT INFORMATION
  Report Type: Spontaneous
  Country: FR (occurrence: FR)
  Receive Date: 20151029
  Receipt Date: 20151209
  Transmission Date: 20160304
  Serious: Yes (Death, Other)
  Sender: FDA-Public Use
  Company Number: FR-009507513-1510FRA011932

PATIENT
  Age: 83 Year
  Sex: Male

DRUGS (4)
  1. SUFENTANIL [Suspect]
     Active Substance: SUFENTANIL
     Indication: INDUCTION OF ANAESTHESIA
     Dosage: 10 MG, QD
     Route: 042
     Dates: start: 20151010, end: 20151010
  2. KETAMINE [Suspect]
     Active Substance: KETAMINE
     Indication: INDUCTION OF ANAESTHESIA
     Dosage: 20 MG, QD
     Route: 042
     Dates: start: 20151010, end: 20151010
  3. ESMERON [Suspect]
     Active Substance: ROCURONIUM BROMIDE
     Indication: INDUCTION OF ANAESTHESIA
     Dosage: 100 MG, QD
     Route: 042
     Dates: start: 20151010, end: 20151010
  4. HYPNOMIDATE [Suspect]
     Active Substance: ETOMIDATE SULFATE
     Indication: INDUCTION OF ANAESTHESIA
     Dosage: 40 MG, QD
     Route: 042
     Dates: start: 20151010, end: 20151010

REACTIONS (1)
  - Anaphylactic shock [Fatal]

NARRATIVE: CASE EVENT DATE: 20151010
